FAERS Safety Report 9170851 (Version 1)
Quarter: 2013Q1

REPORT INFORMATION
  Report Type: Spontaneous
  Country: NL (occurrence: None)
  Receive Date: 20130311
  Receipt Date: 20130311
  Transmission Date: 20140127
  Serious: Yes (Other)
  Sender: FDA-Public Use
  Company Number: 2013-0973

PATIENT
  Age: 75 Year
  Sex: Female

DRUGS (1)
  1. SOMATULINE AUTOGEL 60MG(LANREOTIDE AUTOGEL ) (LANREOTIDE ) (LANREOTIDE ACETATE) [Suspect]
     Indication: NEUROENDOCRINE TUMOUR
     Dosage: 90 MG (90 MG, 1 IN 28 D), SUBCUTANEOUS
     Dates: start: 20091029, end: 20130218

REACTIONS (1)
  - Terminal state [None]
